FAERS Safety Report 9011584 (Version 1)
Quarter: 2013Q1

REPORT INFORMATION
  Report Type: Spontaneous
  Country: US (occurrence: US)
  Receive Date: 20130111
  Receipt Date: 20130111
  Transmission Date: 20140127
  Serious: Yes (Other)
  Sender: FDA-Public Use
  Company Number: US-009507513-1301USA001454

PATIENT
  Age: 40 Year
  Sex: Female

DRUGS (4)
  1. MONTELUKAST SODIUM [Suspect]
     Indication: ASTHMA
  2. ZOLOFT [Suspect]
     Indication: ILL-DEFINED DISORDER
     Dosage: 125 MG, 1 IN 1D
     Route: 048
  3. BUDESONIDE [Concomitant]
  4. FORMOTEROL FUMARATE [Concomitant]

REACTIONS (3)
  - Abdominal discomfort [Unknown]
  - Condition aggravated [Unknown]
  - Asthma [Unknown]
